FAERS Safety Report 21172124 (Version 1)
Quarter: 2022Q3

REPORT INFORMATION
  Report Type: Spontaneous
  Country: US (occurrence: None)
  Receive Date: 20220803
  Receipt Date: 20220803
  Transmission Date: 20221027
  Serious: Yes (Other)
  Sender: FDA-Public Use
  Company Number: None

PATIENT
  Age: 80 Year
  Sex: Male
  Weight: 76.5 kg

DRUGS (22)
  1. AXICABTAGENE CILOLEUCEL [Suspect]
     Active Substance: AXICABTAGENE CILOLEUCEL
     Indication: Follicular lymphoma
     Dosage: FREQUENCY : ONCE;?
     Route: 041
     Dates: start: 20220307
  2. ACYCLOVIR [Concomitant]
     Active Substance: ACYCLOVIR
     Dates: end: 20220314
  3. ALLOPURINOL [Concomitant]
     Active Substance: ALLOPURINOL
     Dates: start: 20220307, end: 20220315
  4. BACLOFEN [Concomitant]
     Active Substance: BACLOFEN
     Dates: end: 20220318
  5. CARVEDILOL [Concomitant]
     Active Substance: CARVEDILOL
     Dates: start: 20220307, end: 20220321
  6. CEFUROXIME [Concomitant]
     Active Substance: CEFUROXIME
     Dates: start: 20220307, end: 20220308
  7. CHLORHEXIDINE [Concomitant]
     Active Substance: CHLORHEXIDINE
     Dates: start: 20220307, end: 20220322
  8. CIPROFLOXACIN [Concomitant]
     Active Substance: CIPROFLOXACIN
     Dates: start: 20220307, end: 20220308
  9. CYCLOBENZAPRINE [Concomitant]
     Active Substance: CYCLOBENZAPRINE
     Dates: end: 20220318
  10. DIGOXIN [Concomitant]
     Active Substance: DIGOXIN
     Dates: end: 20220311
  11. diltiazam [Concomitant]
     Dates: end: 20220311
  12. ENOXAPARIN [Concomitant]
     Active Substance: ENOXAPARIN
     Dates: start: 20220307, end: 20220318
  13. FAMOTIDINE [Concomitant]
     Active Substance: FAMOTIDINE
     Dates: start: 20220307, end: 20220323
  14. FLUCONAZOLE [Concomitant]
     Active Substance: FLUCONAZOLE
     Dates: start: 20220307, end: 20220323
  15. INSULIN NOS [Concomitant]
     Active Substance: INSULIN NOS
     Dates: end: 20220315
  16. LOPERAMIDE [Concomitant]
     Active Substance: LOPERAMIDE
     Dates: start: 20220307, end: 20220320
  17. LORATADINE [Concomitant]
     Active Substance: LORATADINE
     Dates: end: 20220323
  18. LOSARTAN [Concomitant]
     Active Substance: LOSARTAN
     Dates: start: 20220307, end: 20220323
  19. MAGNESIUM [Concomitant]
     Active Substance: MAGNESIUM
     Dates: end: 20220322
  20. ONDANSETRON [Concomitant]
     Active Substance: ONDANSETRON
     Dates: start: 20220307, end: 20220311
  21. ZOSYN [Concomitant]
     Active Substance: PIPERACILLIN SODIUM\TAZOBACTAM SODIUM
     Dates: end: 20220321
  22. POTASSIUM [Concomitant]
     Active Substance: POTASSIUM
     Dates: end: 20220322

REACTIONS (2)
  - Cytokine release syndrome [None]
  - Neurotoxicity [None]

NARRATIVE: CASE EVENT DATE: 20220308
